FAERS Safety Report 15104610 (Version 24)
Quarter: 2025Q3

REPORT INFORMATION
  Report Type: Spontaneous
  Country: CA (occurrence: CA)
  Receive Date: 20180703
  Receipt Date: 20250808
  Transmission Date: 20251020
  Serious: Yes (Other)
  Sender: BAUSCH AND LOMB
  Company Number: CA-BAUSCH-BL-2018-018105

PATIENT
  Age: 48 Year
  Sex: Female

DRUGS (215)
  1. BUDESONIDE [Suspect]
     Active Substance: BUDESONIDE
     Indication: Product used for unknown indication
     Route: 065
  2. BUDESONIDE [Suspect]
     Active Substance: BUDESONIDE
     Route: 065
  3. BUDESONIDE [Suspect]
     Active Substance: BUDESONIDE
     Route: 065
  4. BUDESONIDE [Suspect]
     Active Substance: BUDESONIDE
     Route: 065
  5. BUDESONIDE [Suspect]
     Active Substance: BUDESONIDE
     Route: 065
  6. BUDESONIDE [Suspect]
     Active Substance: BUDESONIDE
     Route: 065
  7. BUDESONIDE [Suspect]
     Active Substance: BUDESONIDE
     Dosage: INHALATION
     Route: 055
  8. WELLBUTRIN [Suspect]
     Active Substance: BUPROPION HYDROCHLORIDE
     Indication: Product used for unknown indication
     Route: 065
  9. WELLBUTRIN [Suspect]
     Active Substance: BUPROPION HYDROCHLORIDE
     Dosage: EXTENDED RELEASE TABLET (ADMINISTERED - 3 TIMES)
     Route: 065
  10. WELLBUTRIN [Suspect]
     Active Substance: BUPROPION HYDROCHLORIDE
     Dosage: WELLBUTRIN (ADMINISTERED - 4 TIMES)
     Route: 065
  11. WELLBUTRIN [Suspect]
     Active Substance: BUPROPION HYDROCHLORIDE
     Route: 065
  12. WELLBUTRIN [Suspect]
     Active Substance: BUPROPION HYDROCHLORIDE
     Dosage: PROLONGED-RELEASE TABLET
     Route: 065
  13. WELLBUTRIN [Suspect]
     Active Substance: BUPROPION HYDROCHLORIDE
     Route: 065
  14. WELLBUTRIN [Suspect]
     Active Substance: BUPROPION HYDROCHLORIDE
     Route: 065
  15. WELLBUTRIN [Suspect]
     Active Substance: BUPROPION HYDROCHLORIDE
     Dosage: PROLONGED-RELEASE TABLET
     Route: 065
  16. WELLBUTRIN [Suspect]
     Active Substance: BUPROPION HYDROCHLORIDE
     Route: 065
  17. WELLBUTRIN [Suspect]
     Active Substance: BUPROPION HYDROCHLORIDE
     Dosage: WELLBUTRIN
     Route: 065
  18. BUPROPION [Suspect]
     Active Substance: BUPROPION
     Indication: Product used for unknown indication
     Route: 065
  19. BUPROPION [Suspect]
     Active Substance: BUPROPION
     Route: 065
  20. BUPROPION [Suspect]
     Active Substance: BUPROPION
     Route: 065
  21. METFORMIN [Suspect]
     Active Substance: METFORMIN HYDROCHLORIDE
     Indication: Product used for unknown indication
     Route: 065
  22. METFORMIN [Suspect]
     Active Substance: METFORMIN HYDROCHLORIDE
     Route: 065
  23. GLUMETZA [Suspect]
     Active Substance: METFORMIN HYDROCHLORIDE
     Indication: Product used for unknown indication
     Route: 065
  24. ALBUTEROL [Suspect]
     Active Substance: ALBUTEROL
     Indication: Product used for unknown indication
     Route: 055
  25. ALBUTEROL [Suspect]
     Active Substance: ALBUTEROL
     Dosage: SALBUTAMOL (ADMINISTERED- 2 TIMES)
     Route: 065
  26. ALBUTEROL [Suspect]
     Active Substance: ALBUTEROL
     Dosage: 4 EVERY 1 DAYS, SALBUTAMOL SULFATE
     Route: 065
  27. ALBUTEROL [Suspect]
     Active Substance: ALBUTEROL
     Route: 065
  28. ALBUTEROL [Suspect]
     Active Substance: ALBUTEROL
     Route: 065
  29. ALBUTEROL [Suspect]
     Active Substance: ALBUTEROL
     Route: 065
  30. ALBUTEROL [Suspect]
     Active Substance: ALBUTEROL
     Route: 065
  31. ALBUTEROL [Suspect]
     Active Substance: ALBUTEROL
     Route: 065
  32. ALBUTEROL [Suspect]
     Active Substance: ALBUTEROL
     Dosage: SALBUTAMOL (ADMINISTERED - 2 TIMES)
     Route: 065
  33. ALBUTEROL [Suspect]
     Active Substance: ALBUTEROL
     Route: 065
  34. ALBUTEROL [Suspect]
     Active Substance: ALBUTEROL
     Dosage: (ADMINISTERED- 2 TIMES)
     Route: 065
  35. ALBUTEROL [Suspect]
     Active Substance: ALBUTEROL
     Route: 065
  36. ALBUTEROL [Suspect]
     Active Substance: ALBUTEROL
     Route: 065
  37. ALBUTEROL [Suspect]
     Active Substance: ALBUTEROL
     Route: 065
  38. ALBUTEROL [Suspect]
     Active Substance: ALBUTEROL
     Route: 065
  39. ALBUTEROL [Suspect]
     Active Substance: ALBUTEROL
     Route: 065
  40. ALBUTEROL [Suspect]
     Active Substance: ALBUTEROL
     Route: 065
  41. ALBUTEROL [Suspect]
     Active Substance: ALBUTEROL
     Route: 065
  42. ALBUTEROL [Suspect]
     Active Substance: ALBUTEROL
     Route: 065
  43. ALBUTEROL [Suspect]
     Active Substance: ALBUTEROL
     Route: 065
  44. ALBUTEROL [Suspect]
     Active Substance: ALBUTEROL
     Route: 065
  45. ALBUTEROL [Suspect]
     Active Substance: ALBUTEROL
     Route: 055
  46. ALBUTEROL SULFATE [Suspect]
     Active Substance: ALBUTEROL SULFATE
     Indication: Product used for unknown indication
     Route: 065
  47. ALBUTEROL SULFATE [Suspect]
     Active Substance: ALBUTEROL SULFATE
     Dosage: METERED-DOSE (AEROSOL)
     Route: 065
  48. ALBUTEROL SULFATE [Suspect]
     Active Substance: ALBUTEROL SULFATE
     Dosage: METERED-DOSE (AEROSOL) ADMINISTERED 2 TIMES
     Route: 065
  49. ALBUTEROL SULFATE [Suspect]
     Active Substance: ALBUTEROL SULFATE
     Dosage: METERED-DOSE (AEROSOL)
     Route: 065
  50. ALBUTEROL SULFATE [Suspect]
     Active Substance: ALBUTEROL SULFATE
     Dosage: METERED-DOSE (AEROSOL) (3 ADMINISTRATIONS)
     Route: 065
  51. ALBUTEROL SULFATE [Suspect]
     Active Substance: ALBUTEROL SULFATE
     Route: 065
  52. ALBUTEROL SULFATE [Suspect]
     Active Substance: ALBUTEROL SULFATE
     Route: 065
  53. ALBUTEROL SULFATE [Suspect]
     Active Substance: ALBUTEROL SULFATE
     Route: 065
  54. ABILIFY [Suspect]
     Active Substance: ARIPIPRAZOLE
     Indication: Product used for unknown indication
     Route: 065
  55. AMITRIPTYLINE [Suspect]
     Active Substance: AMITRIPTYLINE
     Indication: Product used for unknown indication
     Route: 065
  56. AMITRIPTYLINE [Suspect]
     Active Substance: AMITRIPTYLINE
     Route: 065
  57. AMITRIPTYLINE [Suspect]
     Active Substance: AMITRIPTYLINE
     Route: 065
  58. AMITRIPTYLINE [Suspect]
     Active Substance: AMITRIPTYLINE
     Route: 065
  59. AMITRIPTYLINE [Suspect]
     Active Substance: AMITRIPTYLINE
     Route: 065
  60. AMITRIPTYLINE [Suspect]
     Active Substance: AMITRIPTYLINE
     Route: 065
  61. PERINDOPRIL [Suspect]
     Active Substance: PERINDOPRIL
     Indication: Product used for unknown indication
     Route: 065
  62. PERINDOPRIL [Suspect]
     Active Substance: PERINDOPRIL
     Route: 065
  63. PERINDOPRIL [Suspect]
     Active Substance: PERINDOPRIL
  64. PERINDOPRIL [Suspect]
     Active Substance: PERINDOPRIL
  65. PERINDOPRIL [Suspect]
     Active Substance: PERINDOPRIL
  66. PERINDOPRIL [Suspect]
     Active Substance: PERINDOPRIL
     Dosage: (ADMINISTERED - 2 TIMES)
     Route: 065
  67. PERINDOPRIL [Suspect]
     Active Substance: PERINDOPRIL
  68. PERINDOPRIL [Suspect]
     Active Substance: PERINDOPRIL
  69. PERINDOPRIL [Suspect]
     Active Substance: PERINDOPRIL
  70. PULMICORT TURBUHALER [Suspect]
     Active Substance: BUDESONIDE
     Indication: Product used for unknown indication
     Dosage: (ADMINISTRATION - 4 TIMES)
     Route: 065
  71. PULMICORT TURBUHALER [Suspect]
     Active Substance: BUDESONIDE
     Route: 045
  72. PULMICORT TURBUHALER [Suspect]
     Active Substance: BUDESONIDE
  73. PULMICORT TURBUHALER [Suspect]
     Active Substance: BUDESONIDE
  74. PULMICORT TURBUHALER [Suspect]
     Active Substance: BUDESONIDE
     Dosage: 1 EVERY .5 DAYS
     Route: 055
  75. PULMICORT TURBUHALER [Suspect]
     Active Substance: BUDESONIDE
     Route: 065
  76. PULMICORT TURBUHALER [Suspect]
     Active Substance: BUDESONIDE
  77. PULMICORT TURBUHALER [Suspect]
     Active Substance: BUDESONIDE
  78. PULMICORT TURBUHALER [Suspect]
     Active Substance: BUDESONIDE
     Route: 055
  79. PULMICORT TURBUHALER [Suspect]
     Active Substance: BUDESONIDE
     Dosage: PULMICORT TURBUHALER
     Route: 055
  80. PULMICORT TURBUHALER [Suspect]
     Active Substance: BUDESONIDE
  81. PULMICORT TURBUHALER [Suspect]
     Active Substance: BUDESONIDE
  82. PULMICORT TURBUHALER [Suspect]
     Active Substance: BUDESONIDE
     Route: 065
  83. PULMICORT TURBUHALER [Suspect]
     Active Substance: BUDESONIDE
  84. PULMICORT TURBUHALER [Suspect]
     Active Substance: BUDESONIDE
  85. PULMICORT TURBUHALER [Suspect]
     Active Substance: BUDESONIDE
     Route: 065
  86. PULMICORT TURBUHALER [Suspect]
     Active Substance: BUDESONIDE
  87. PULMICORT TURBUHALER [Suspect]
     Active Substance: BUDESONIDE
  88. PULMICORT TURBUHALER [Suspect]
     Active Substance: BUDESONIDE
     Dosage: PULMICORT TURBUHALER
     Route: 055
  89. PULMICORT TURBUHALER [Suspect]
     Active Substance: BUDESONIDE
  90. PULMICORT TURBUHALER [Suspect]
     Active Substance: BUDESONIDE
  91. PULMICORT TURBUHALER [Suspect]
     Active Substance: BUDESONIDE
     Dosage: PULMICORT TURBUHALER
     Route: 055
  92. PULMICORT TURBUHALER [Suspect]
     Active Substance: BUDESONIDE
  93. PULMICORT TURBUHALER [Suspect]
     Active Substance: BUDESONIDE
  94. PULMICORT TURBUHALER [Suspect]
     Active Substance: BUDESONIDE
     Dosage: PULMICORT TURBUHALER
     Route: 055
  95. PULMICORT TURBUHALER [Suspect]
     Active Substance: BUDESONIDE
  96. PULMICORT TURBUHALER [Suspect]
     Active Substance: BUDESONIDE
  97. PULMICORT TURBUHALER [Suspect]
     Active Substance: BUDESONIDE
     Dosage: INHALATION USE
     Route: 065
  98. PULMICORT TURBUHALER [Suspect]
     Active Substance: BUDESONIDE
     Dosage: INHALATION USE
     Route: 065
  99. PULMICORT TURBUHALER [Suspect]
     Active Substance: BUDESONIDE
     Dosage: INHALATION USE
     Route: 065
  100. PULMICORT TURBUHALER [Suspect]
     Active Substance: BUDESONIDE
     Route: 065
  101. PULMICORT TURBUHALER [Suspect]
     Active Substance: BUDESONIDE
     Route: 065
  102. PULMICORT TURBUHALER [Suspect]
     Active Substance: BUDESONIDE
     Route: 065
  103. PULMICORT TURBUHALER [Suspect]
     Active Substance: BUDESONIDE
  104. PULMICORT TURBUHALER [Suspect]
     Active Substance: BUDESONIDE
  105. PULMICORT TURBUHALER [Suspect]
     Active Substance: BUDESONIDE
     Route: 065
  106. PULMICORT TURBUHALER [Suspect]
     Active Substance: BUDESONIDE
  107. PULMICORT TURBUHALER [Suspect]
     Active Substance: BUDESONIDE
  108. PULMICORT TURBUHALER [Suspect]
     Active Substance: BUDESONIDE
     Route: 065
  109. PULMICORT TURBUHALER [Suspect]
     Active Substance: BUDESONIDE
  110. PULMICORT TURBUHALER [Suspect]
     Active Substance: BUDESONIDE
  111. PULMICORT TURBUHALER [Suspect]
     Active Substance: BUDESONIDE
     Route: 065
  112. PULMICORT TURBUHALER [Suspect]
     Active Substance: BUDESONIDE
  113. PULMICORT TURBUHALER [Suspect]
     Active Substance: BUDESONIDE
  114. PULMICORT TURBUHALER [Suspect]
     Active Substance: BUDESONIDE
     Route: 055
  115. SPIRIVA [Suspect]
     Active Substance: TIOTROPIUM BROMIDE MONOHYDRATE
     Indication: Product used for unknown indication
     Route: 065
  116. SPIRIVA [Suspect]
     Active Substance: TIOTROPIUM BROMIDE MONOHYDRATE
     Route: 065
  117. SPIRIVA [Suspect]
     Active Substance: TIOTROPIUM BROMIDE MONOHYDRATE
  118. SPIRIVA [Suspect]
     Active Substance: TIOTROPIUM BROMIDE MONOHYDRATE
     Route: 065
  119. SPIRIVA [Suspect]
     Active Substance: TIOTROPIUM BROMIDE MONOHYDRATE
  120. SPIRIVA [Suspect]
     Active Substance: TIOTROPIUM BROMIDE MONOHYDRATE
     Route: 065
  121. SPIRIVA [Suspect]
     Active Substance: TIOTROPIUM BROMIDE MONOHYDRATE
  122. SPIRIVA [Suspect]
     Active Substance: TIOTROPIUM BROMIDE MONOHYDRATE
     Route: 065
  123. SPIRIVA [Suspect]
     Active Substance: TIOTROPIUM BROMIDE MONOHYDRATE
  124. SPIRIVA [Suspect]
     Active Substance: TIOTROPIUM BROMIDE MONOHYDRATE
     Route: 065
  125. SPIRIVA [Suspect]
     Active Substance: TIOTROPIUM BROMIDE MONOHYDRATE
  126. SPIRIVA [Suspect]
     Active Substance: TIOTROPIUM BROMIDE MONOHYDRATE
     Dosage: (ADMINISTERED - 3 TIMES)
     Route: 065
  127. SPIRIVA [Suspect]
     Active Substance: TIOTROPIUM BROMIDE MONOHYDRATE
  128. SPIRIVA [Suspect]
     Active Substance: TIOTROPIUM BROMIDE MONOHYDRATE
     Route: 065
  129. SPIRIVA [Suspect]
     Active Substance: TIOTROPIUM BROMIDE MONOHYDRATE
  130. SPIRIVA [Suspect]
     Active Substance: TIOTROPIUM BROMIDE MONOHYDRATE
     Dosage: (ADMINISTERED - 4 TIMES)
     Route: 065
  131. SPIRIVA [Suspect]
     Active Substance: TIOTROPIUM BROMIDE MONOHYDRATE
  132. SPIRIVA [Suspect]
     Active Substance: TIOTROPIUM BROMIDE MONOHYDRATE
     Route: 065
  133. SPIRIVA [Suspect]
     Active Substance: TIOTROPIUM BROMIDE MONOHYDRATE
  134. SYMBICORT [Suspect]
     Active Substance: BUDESONIDE\FORMOTEROL FUMARATE DIHYDRATE
     Indication: Product used for unknown indication
     Route: 055
  135. SYMBICORT [Suspect]
     Active Substance: BUDESONIDE\FORMOTEROL FUMARATE DIHYDRATE
     Route: 055
  136. SYMBICORT [Suspect]
     Active Substance: BUDESONIDE\FORMOTEROL FUMARATE DIHYDRATE
     Route: 055
  137. SYMBICORT [Suspect]
     Active Substance: BUDESONIDE\FORMOTEROL FUMARATE DIHYDRATE
     Route: 065
  138. SYMBICORT [Suspect]
     Active Substance: BUDESONIDE\FORMOTEROL FUMARATE DIHYDRATE
     Route: 065
  139. SYMBICORT [Suspect]
     Active Substance: BUDESONIDE\FORMOTEROL FUMARATE DIHYDRATE
     Route: 065
  140. SYMBICORT [Suspect]
     Active Substance: BUDESONIDE\FORMOTEROL FUMARATE DIHYDRATE
     Route: 065
  141. SYMBICORT [Suspect]
     Active Substance: BUDESONIDE\FORMOTEROL FUMARATE DIHYDRATE
     Route: 065
  142. SYNTHROID [Suspect]
     Active Substance: LEVOTHYROXINE SODIUM
     Indication: Product used for unknown indication
     Route: 065
  143. SYNTHROID [Suspect]
     Active Substance: LEVOTHYROXINE SODIUM
     Route: 065
  144. SYNTHROID [Suspect]
     Active Substance: LEVOTHYROXINE SODIUM
     Route: 065
  145. BUDESONIDE\FORMOTEROL [Suspect]
     Active Substance: BUDESONIDE\FORMOTEROL
     Indication: Product used for unknown indication
     Route: 045
  146. BUDESONIDE\FORMOTEROL [Suspect]
     Active Substance: BUDESONIDE\FORMOTEROL
     Dosage: BUDESONIDE;FORMOTEROL
     Route: 055
  147. BUDESONIDE\FORMOTEROL [Suspect]
     Active Substance: BUDESONIDE\FORMOTEROL
     Dosage: BUDESONIDE;FORMOTEROL
     Route: 065
  148. BUDESONIDE\FORMOTEROL [Suspect]
     Active Substance: BUDESONIDE\FORMOTEROL
     Route: 055
  149. BUDESONIDE\FORMOTEROL [Suspect]
     Active Substance: BUDESONIDE\FORMOTEROL
     Dosage: BUDESONIDE;FORMOTEROL
     Route: 065
  150. BUDESONIDE\FORMOTEROL [Suspect]
     Active Substance: BUDESONIDE\FORMOTEROL
     Route: 065
  151. BUDESONIDE\FORMOTEROL [Suspect]
     Active Substance: BUDESONIDE\FORMOTEROL
     Route: 055
  152. BUDESONIDE\FORMOTEROL [Suspect]
     Active Substance: BUDESONIDE\FORMOTEROL
     Dosage: BUDESONIDE/FORMOTEROL FUMARATE
     Route: 055
  153. BUDESONIDE\FORMOTEROL [Suspect]
     Active Substance: BUDESONIDE\FORMOTEROL
     Dosage: BUDESONIDE/FORMOTEROL FUMARATE (ADMINISTERED - 2 TIMES)
     Route: 065
  154. BUDESONIDE\FORMOTEROL [Suspect]
     Active Substance: BUDESONIDE\FORMOTEROL
     Dosage: BUDESONIDE/FORMOTEROL FUMARATE (ADMINISTERED - 3 TIMES).
     Route: 055
  155. BUDESONIDE\FORMOTEROL [Suspect]
     Active Substance: BUDESONIDE\FORMOTEROL
     Dosage: BUDESONIDE/FORMOTEROL FUMARATE
     Route: 055
  156. BUDESONIDE\FORMOTEROL [Suspect]
     Active Substance: BUDESONIDE\FORMOTEROL
     Route: 065
  157. BUDESONIDE\FORMOTEROL [Suspect]
     Active Substance: BUDESONIDE\FORMOTEROL
     Route: 065
  158. BUDESONIDE\FORMOTEROL [Suspect]
     Active Substance: BUDESONIDE\FORMOTEROL
     Dosage: INHALATION USE
     Route: 065
  159. BUDESONIDE\FORMOTEROL [Suspect]
     Active Substance: BUDESONIDE\FORMOTEROL
     Dosage: INHALATION USE
     Route: 065
  160. BUDESONIDE\FORMOTEROL [Suspect]
     Active Substance: BUDESONIDE\FORMOTEROL
     Dosage: INHALATION USE
     Route: 065
  161. BUDESONIDE\FORMOTEROL [Suspect]
     Active Substance: BUDESONIDE\FORMOTEROL
     Route: 065
  162. BUDESONIDE\FORMOTEROL [Suspect]
     Active Substance: BUDESONIDE\FORMOTEROL
     Route: 065
  163. BUDESONIDE\FORMOTEROL [Suspect]
     Active Substance: BUDESONIDE\FORMOTEROL
     Route: 065
  164. BUDESONIDE\FORMOTEROL [Suspect]
     Active Substance: BUDESONIDE\FORMOTEROL
     Dosage: BUDESONIDE/FORMOTEROL FUMARATE (ADMINISTERED - 2TIMES)
     Route: 065
  165. BUDESONIDE\FORMOTEROL [Suspect]
     Active Substance: BUDESONIDE\FORMOTEROL
     Dosage: BUDESONIDE/FORMOTEROL FUMARATE
     Route: 065
  166. BUDESONIDE\FORMOTEROL [Suspect]
     Active Substance: BUDESONIDE\FORMOTEROL
     Dosage: BUDESONIDE/FORMOTEROL FUMARATE (ADMINISTERED - 2 TIMES)
     Route: 065
  167. BUDESONIDE\FORMOTEROL [Suspect]
     Active Substance: BUDESONIDE\FORMOTEROL
     Dosage: BUDESONIDE/FORMOTEROL FUMARATE (ADMINISTERED - 3 TIMES).
     Route: 065
  168. PANTOPRAZOLE [Suspect]
     Active Substance: PANTOPRAZOLE
     Indication: Product used for unknown indication
     Route: 065
  169. PANTOPRAZOLE [Suspect]
     Active Substance: PANTOPRAZOLE
  170. PANTOPRAZOLE [Suspect]
     Active Substance: PANTOPRAZOLE
  171. PANTOPRAZOLE [Suspect]
     Active Substance: PANTOPRAZOLE
  172. PANTOPRAZOLE [Suspect]
     Active Substance: PANTOPRAZOLE
  173. PANTOPRAZOLE [Suspect]
     Active Substance: PANTOPRAZOLE
     Route: 065
  174. PANTOPRAZOLE [Suspect]
     Active Substance: PANTOPRAZOLE
  175. PANTOPRAZOLE [Suspect]
     Active Substance: PANTOPRAZOLE
  176. PANTOPRAZOLE [Suspect]
     Active Substance: PANTOPRAZOLE
  177. PANTOPRAZOLE [Suspect]
     Active Substance: PANTOPRAZOLE
  178. PANTOPRAZOLE [Suspect]
     Active Substance: PANTOPRAZOLE
     Route: 065
  179. PANTOPRAZOLE [Suspect]
     Active Substance: PANTOPRAZOLE
  180. PANTOPRAZOLE [Suspect]
     Active Substance: PANTOPRAZOLE
  181. PANTOPRAZOLE [Suspect]
     Active Substance: PANTOPRAZOLE
  182. PANTOPRAZOLE [Suspect]
     Active Substance: PANTOPRAZOLE
  183. PANTOPRAZOLE [Suspect]
     Active Substance: PANTOPRAZOLE
     Route: 065
  184. TIOTROPIUM BROMIDE [Suspect]
     Active Substance: TIOTROPIUM BROMIDE
     Indication: Product used for unknown indication
     Route: 065
  185. TIOTROPIUM BROMIDE [Suspect]
     Active Substance: TIOTROPIUM BROMIDE
     Route: 065
  186. TIOTROPIUM BROMIDE [Suspect]
     Active Substance: TIOTROPIUM BROMIDE
     Dosage: (ADMINISTERED - 2TIMES)
     Route: 065
  187. TIOTROPIUM BROMIDE [Suspect]
     Active Substance: TIOTROPIUM BROMIDE
     Route: 065
  188. TIOTROPIUM BROMIDE [Suspect]
     Active Substance: TIOTROPIUM BROMIDE
     Dosage: TIOTROPIUM BROMIDE MONOHYDRATE
     Route: 065
  189. TIOTROPIUM BROMIDE [Suspect]
     Active Substance: TIOTROPIUM BROMIDE
     Dosage: TIOTROPIUM BROMIDE MONOHYDRATE
     Route: 065
  190. ARIPIPRAZOLE [Suspect]
     Active Substance: ARIPIPRAZOLE
     Indication: Product used for unknown indication
     Route: 065
  191. ARIPIPRAZOLE [Suspect]
     Active Substance: ARIPIPRAZOLE
     Route: 065
  192. LEVOTHYROXINE SODIUM [Suspect]
     Active Substance: LEVOTHYROXINE SODIUM
     Indication: Product used for unknown indication
     Route: 065
  193. LEVOTHYROXINE SODIUM [Suspect]
     Active Substance: LEVOTHYROXINE SODIUM
     Route: 065
  194. GLYCONIAZIDE [Suspect]
     Active Substance: GLYCONIAZIDE
     Indication: Product used for unknown indication
     Route: 065
  195. GLYCONIAZIDE [Suspect]
     Active Substance: GLYCONIAZIDE
     Route: 065
  196. GLYCONIAZIDE [Suspect]
     Active Substance: GLYCONIAZIDE
     Route: 065
  197. ELAVIL [Suspect]
     Active Substance: AMITRIPTYLINE HYDROCHLORIDE
     Indication: Product used for unknown indication
     Route: 065
  198. METFORMIN HYDROCHLORIDE [Suspect]
     Active Substance: METFORMIN HYDROCHLORIDE
     Indication: Product used for unknown indication
     Route: 065
  199. FORMOTEROL [Suspect]
     Active Substance: FORMOTEROL
     Indication: Product used for unknown indication
     Dosage: FORMOTEROL FOR INHALATION (ADMINISTERED - 3 TIMES)
     Route: 065
  200. FORMOTEROL [Suspect]
     Active Substance: FORMOTEROL
     Route: 065
  201. FORMOTEROL [Suspect]
     Active Substance: FORMOTEROL
     Route: 065
  202. FORMOTEROL [Suspect]
     Active Substance: FORMOTEROL
     Dosage: FORMOTEROL FUMARATE
     Route: 065
  203. FORMOTEROL [Suspect]
     Active Substance: FORMOTEROL
     Dosage: FORMOTEROL FOR INHALATION (ADMINISTERED -2 TIMES)
     Route: 065
  204. FORMOTEROL [Suspect]
     Active Substance: FORMOTEROL
     Route: 065
  205. FORMOTEROL [Suspect]
     Active Substance: FORMOTEROL
     Route: 065
  206. AMLODIPINE\INDAPAMIDE\PERINDOPRIL [Suspect]
     Active Substance: AMLODIPINE\INDAPAMIDE\PERINDOPRIL
     Indication: Product used for unknown indication
     Route: 065
  207. REPAGLINIDE [Suspect]
     Active Substance: REPAGLINIDE
     Indication: Product used for unknown indication
     Route: 065
  208. REPAGLINIDE [Suspect]
     Active Substance: REPAGLINIDE
     Route: 065
  209. BUDESONIDE [Suspect]
     Active Substance: BUDESONIDE
     Indication: Product used for unknown indication
     Route: 055
  210. ALLOPURINOL [Suspect]
     Active Substance: ALLOPURINOL
     Indication: Product used for unknown indication
     Route: 065
  211. ALLOPURINOL [Suspect]
     Active Substance: ALLOPURINOL
     Route: 065
  212. BUDESONIDE [Suspect]
     Active Substance: BUDESONIDE
     Indication: Product used for unknown indication
     Route: 065
  213. BUDESONIDE [Suspect]
     Active Substance: BUDESONIDE
     Route: 065
  214. BUDESONIDE [Suspect]
     Active Substance: BUDESONIDE
     Route: 065
  215. BUDESONIDE [Suspect]
     Active Substance: BUDESONIDE
     Dosage: 02 TIMES ADMINISTERED.
     Route: 065

REACTIONS (4)
  - Hypothyroidism [Unknown]
  - Asthma [Unknown]
  - Diabetes mellitus [Unknown]
  - Hypertension [Unknown]
